FAERS Safety Report 11839624 (Version 4)
Quarter: 2016Q1

REPORT INFORMATION
  Report Type: Report from Study
  Country: US (occurrence: US)
  Receive Date: 20151216
  Receipt Date: 20160329
  Transmission Date: 20160525
  Serious: Yes (Hospitalization)
  Sender: FDA-Public Use
  Company Number: US-BEH-2015056748

PATIENT
  Age: 71 Year
  Sex: Female
  Weight: 56 kg

DRUGS (31)
  1. ZEMAIRA [Suspect]
     Active Substance: .ALPHA.1-PROTEINASE INHIBITOR HUMAN
     Dosage: 60 MG/DL
     Route: 042
     Dates: start: 20151207
  2. NORMAL SALINE [Concomitant]
     Active Substance: SODIUM CHLORIDE
  3. PROBIOTIC [Concomitant]
     Active Substance: PROBIOTICS NOS
  4. MULTIVITAMINS [Concomitant]
     Active Substance: VITAMINS
  5. VITAMIN B [Concomitant]
     Active Substance: VITAMIN B
  6. DIPHENHYDRAMINE. [Concomitant]
     Active Substance: DIPHENHYDRAMINE
  7. CLINDAMYCIN HCL [Concomitant]
     Active Substance: CLINDAMYCIN HYDROCHLORIDE
  8. IBUPROFEN. [Concomitant]
     Active Substance: IBUPROFEN
  9. OXYGEN. [Concomitant]
     Active Substance: OXYGEN
  10. OMEGA 3 [Concomitant]
     Active Substance: OMEGA-3 FATTY ACIDS
  11. CALCIUM [Concomitant]
     Active Substance: CALCIUM
  12. SODIUM CHLORIDE. [Concomitant]
     Active Substance: SODIUM CHLORIDE
  13. FLONASE [Concomitant]
     Active Substance: FLUTICASONE PROPIONATE
  14. ZEMAIRA [Suspect]
     Active Substance: .ALPHA.1-PROTEINASE INHIBITOR HUMAN
     Indication: ALPHA-1 ANTI-TRYPSIN DEFICIENCY
     Dates: start: 20130521
  15. PENICILLIN POTASSIUM [Concomitant]
  16. LEXAPRO [Concomitant]
     Active Substance: ESCITALOPRAM OXALATE
  17. CVS VITAMIN C [Concomitant]
  18. EPIPEN [Concomitant]
     Active Substance: EPINEPHRINE
  19. VITAMIN B12 [Concomitant]
     Active Substance: CYANOCOBALAMIN
  20. CITRACAL+BONE DENSITY [Concomitant]
  21. VALACYCLOVIR [Concomitant]
     Active Substance: VALACYCLOVIR HYDROCHLORIDE
  22. RECLAST [Concomitant]
     Active Substance: ZOLEDRONIC ACID
  23. CENTRUM SILVER [Concomitant]
     Active Substance: MINERALS\VITAMINS
  24. ZEMAIRA [Suspect]
     Active Substance: .ALPHA.1-PROTEINASE INHIBITOR HUMAN
     Route: 042
     Dates: start: 20120808
  25. ZEMAIRA [Suspect]
     Active Substance: .ALPHA.1-PROTEINASE INHIBITOR HUMAN
     Route: 042
  26. LIDOCAINE/PRILOCAINE [Concomitant]
  27. PREDNISONE. [Concomitant]
     Active Substance: PREDNISONE
  28. FOLIC ACID. [Concomitant]
     Active Substance: FOLIC ACID
  29. ADVAIR HFA [Concomitant]
     Active Substance: FLUTICASONE PROPIONATE\SALMETEROL XINAFOATE
  30. SEROQUEL [Concomitant]
     Active Substance: QUETIAPINE FUMARATE
  31. SPIRIVA [Concomitant]
     Active Substance: TIOTROPIUM BROMIDE MONOHYDRATE

REACTIONS (4)
  - Drug dose omission [Recovered/Resolved]
  - Pneumonia [Recovered/Resolved]
  - Infection [Recovered/Resolved]
  - Bacterial infection [Recovered/Resolved]

NARRATIVE: CASE EVENT DATE: 201512
